FAERS Safety Report 6661286-6 (Version None)
Quarter: 2010Q1

REPORT INFORMATION
  Report Type: 
  Country: None (occurrence: None)
  Receive Date: 20100331
  Receipt Date: 20100322
  Transmission Date: 20100710
  Serious: Yes (Other)
  Sender: FDA-Public Use
  Company Number: US-JNJFOC-20091105648

PATIENT
  Sex: Male

DRUGS (6)
  1. REMICADE [Suspect]
     Indication: RHEUMATOID ARTHRITIS
     Route: 042
     Dates: start: 20070628, end: 20090921
  2. REMICADE [Suspect]
     Route: 042
     Dates: start: 20070628, end: 20090921
  3. REMICADE [Suspect]
     Route: 042
     Dates: start: 20070628, end: 20090921
  4. REMICADE [Suspect]
     Route: 042
     Dates: start: 20070628, end: 20090921
  5. REMICADE [Suspect]
     Route: 042
     Dates: start: 20070628, end: 20090921
  6. REMICADE [Suspect]
     Route: 042
     Dates: start: 20070628, end: 20090921

REACTIONS (1)
  - DUPUYTREN'S CONTRACTURE [None]
